FAERS Safety Report 12667262 (Version 1)
Quarter: 2016Q3

REPORT INFORMATION
  Report Type: Spontaneous
  Country: US (occurrence: None)
  Receive Date: 20160818
  Receipt Date: 20160818
  Transmission Date: 20161109
  Serious: Yes (Disabling)
  Sender: FDA-Public Use
  Company Number: None

PATIENT
  Age: 56 Year
  Sex: Male
  Weight: 90.72 kg

DRUGS (3)
  1. CENTRUM SILVER MULTIVITAMIN [Concomitant]
  2. ESCITALOPRAM OXALATE ORAL SOL^N, 5 MG CAMBER PHARMACEUTICALS, INC [Suspect]
     Active Substance: ESCITALOPRAM OXALATE
     Indication: DEPRESSION
     Dosage: 2 TEASPOON
     Route: 048
     Dates: start: 20160806, end: 20160814
  3. FISH OIL [Concomitant]
     Active Substance: FISH OIL

REACTIONS (5)
  - Anxiety [None]
  - Drug ineffective [None]
  - Disease recurrence [None]
  - Product substitution issue [None]
  - Depression [None]

NARRATIVE: CASE EVENT DATE: 20160815
